FAERS Safety Report 7809461-9 (Version None)
Quarter: 2011Q4

REPORT INFORMATION
  Report Type: 
  Country: None (occurrence: None)
  Receive Date: 20111012
  Receipt Date: 20110928
  Transmission Date: 20120403
  Serious: Yes (Other)
  Sender: FDA-Public Use
  Company Number: PHHY2011JP86451

PATIENT
  Age: 72 Year
  Sex: Female

DRUGS (2)
  1. ADALIMUMAB [Suspect]
     Indication: PSORIASIS
     Dosage: UNK UKN, UNK
     Route: 058
  2. CYCLOSPORINE [Suspect]
     Indication: PSORIASIS
     Dosage: UNK UKN, UNK

REACTIONS (2)
  - INTERSTITIAL LUNG DISEASE [None]
  - DRUG INEFFECTIVE [None]
